FAERS Safety Report 20715337 (Version 1)
Quarter: 2022Q2

REPORT INFORMATION
  Report Type: Spontaneous
  Country: FR (occurrence: FR)
  Receive Date: 20220415
  Receipt Date: 20220415
  Transmission Date: 20220720
  Serious: Yes (Hospitalization)
  Sender: FDA-Public Use
  Company Number: None

PATIENT
  Age: 58 Year
  Sex: Female
  Weight: 105 kg

DRUGS (3)
  1. PAXLOVID [Interacting]
     Active Substance: NIRMATRELVIR\RITONAVIR
     Indication: COVID-19 treatment
     Dosage: [PF-07321332 150MG] / [RITONAVIR 100MG]; 2X/DAY
     Route: 048
     Dates: start: 20220317, end: 20220321
  2. TACROLIMUS [Interacting]
     Active Substance: TACROLIMUS
     Indication: Renal transplant
     Dosage: 12 MG, 1X/DAY
     Route: 048
     Dates: end: 20220316
  3. TACROLIMUS [Interacting]
     Active Substance: TACROLIMUS
     Dosage: 12 MG, 1X/DAY
     Route: 048
     Dates: start: 20220322, end: 20220326

REACTIONS (3)
  - Drug interaction [Recovered/Resolved]
  - Drug level increased [Recovered/Resolved]
  - Renal failure [Not Recovered/Not Resolved]

NARRATIVE: CASE EVENT DATE: 20220322
